FAERS Safety Report 19379642 (Version 1)
Quarter: 2021Q2

REPORT INFORMATION
  Report Type: Spontaneous
  Country: US (occurrence: US)
  Receive Date: 20210607
  Receipt Date: 20210607
  Transmission Date: 20210717
  Serious: No
  Sender: FDA-Public Use
  Company Number: US-DRREDDYS-USA/USA/21/0136388

PATIENT
  Age: 34 Year
  Sex: Male

DRUGS (2)
  1. ZENATANE [Suspect]
     Active Substance: ISOTRETINOIN
     Dosage: RMA ISSUE DATE: 30/APRIL/2021 11:50:36 AM
  2. ZENATANE [Suspect]
     Active Substance: ISOTRETINOIN
     Indication: PRODUCT USED FOR UNKNOWN INDICATION
     Dosage: RMA ISSUE DATE: 28/JANUARY/2021 3:15:03 PM, 22/FEBRUARY/4:40:19 PM, 29/MARCH/ 2021 3:51:21 PM

REACTIONS (1)
  - Therapy cessation [Unknown]
